FAERS Safety Report 16728985 (Version 2)
Quarter: 2019Q3

REPORT INFORMATION
  Report Type: Spontaneous
  Country: US (occurrence: US)
  Receive Date: 20190822
  Receipt Date: 20190924
  Transmission Date: 20191005
  Serious: No
  Sender: FDA-Public Use
  Company Number: US-009507513-1908USA003984

PATIENT
  Age: 19 Year
  Sex: Female
  Weight: 95.69 kg

DRUGS (1)
  1. NEXPLANON [Suspect]
     Active Substance: ETONOGESTREL
     Dosage: 1 IMPLANT
     Route: 059
     Dates: start: 20190628, end: 2019

REACTIONS (4)
  - Device expulsion [Recovered/Resolved]
  - Implant site pain [Unknown]
  - Product quality issue [Unknown]
  - Pain in extremity [Unknown]

NARRATIVE: CASE EVENT DATE: 201906
